FAERS Safety Report 10715685 (Version 3)
Quarter: 2016Q1

REPORT INFORMATION
  Report Type: Report from Study
  Country: MX (occurrence: MX)
  Receive Date: 20150116
  Receipt Date: 20160322
  Transmission Date: 20160525
  Serious: Yes (Death, Hospitalization)
  Sender: FDA-Public Use
  Company Number: PHHY2015MX004548

PATIENT
  Age: 73 Year
  Sex: Female

DRUGS (3)
  1. EXFORGE HCT [Suspect]
     Active Substance: AMLODIPINE BESYLATE\HYDROCHLOROTHIAZIDE\VALSARTAN
     Indication: HYPERTENSION
     Dosage: 1 DF, QD
     Route: 048
     Dates: start: 2012
  2. SANDOSTATIN LAR DEPOT [Suspect]
     Active Substance: OCTREOTIDE ACETATE
     Indication: CARCINOID SYNDROME
     Dosage: 20 MG, MONTHLY
     Route: 065
     Dates: start: 20141229, end: 201502
  3. SANDOSTATIN LAR DEPOT [Suspect]
     Active Substance: OCTREOTIDE ACETATE
     Indication: DERMATOMYOSITIS

REACTIONS (11)
  - Respiratory failure [Fatal]
  - Dermatomyositis [Fatal]
  - Product use issue [Unknown]
  - General physical health deterioration [Recovered/Resolved]
  - Diarrhoea [Recovered/Resolved]
  - Respiratory arrest [Fatal]
  - Dyspnoea [Recovered/Resolved]
  - Decreased appetite [Recovered/Resolved]
  - General physical health deterioration [Unknown]
  - Disease progression [Fatal]
  - Pyrexia [Recovered/Resolved]

NARRATIVE: CASE EVENT DATE: 20141229
